FAERS Safety Report 4997189-2 (Version None)
Quarter: 2006Q2

REPORT INFORMATION
  Report Type: 
  Country: None (occurrence: None)
  Receive Date: 20060508
  Receipt Date: 20060508
  Transmission Date: 20061013
  Serious: Yes (Other)
  Sender: FDA-Public Use
  Company Number: None

PATIENT
  Age: 48 Year
  Sex: Female
  Weight: 136.9863 kg

DRUGS (3)
  1. LEVAQUIN [Suspect]
     Indication: KIDNEY INFECTION
     Dosage: 1 TABLET DAILY PO
     Route: 048
     Dates: start: 20060309, end: 20060314
  2. LEVAQUIN [Suspect]
     Indication: LYMPHADENOPATHY
     Dosage: 1 TABLET DAILY PO
     Route: 048
     Dates: start: 20060309, end: 20060314
  3. LEVAQUIN [Suspect]
     Indication: X-RAY ABNORMAL
     Dosage: 1 TABLET DAILY PO
     Route: 048
     Dates: start: 20060309, end: 20060314

REACTIONS (7)
  - ANXIETY [None]
  - DYSPNOEA [None]
  - IMPAIRED WORK ABILITY [None]
  - MYALGIA [None]
  - PANIC ATTACK [None]
  - PSYCHOTIC DISORDER [None]
  - PYREXIA [None]
